FAERS Safety Report 22241934 (Version 1)
Quarter: 2023Q2

REPORT INFORMATION
  Report Type: Report from Study
  Country: IN (occurrence: IN)
  Receive Date: 20230421
  Receipt Date: 20230421
  Transmission Date: 20230721
  Serious: Yes (Other)
  Sender: FDA-Public Use
  Company Number: IN-002147023-NVSC2020IN080377

PATIENT
  Age: 37 Year
  Sex: Female
  Weight: 95 kg

DRUGS (5)
  1. RIBOCICLIB [Suspect]
     Active Substance: RIBOCICLIB
     Indication: Breast cancer metastatic
     Dosage: 600 MG, QD
     Route: 065
  2. RIBOCICLIB [Suspect]
     Active Substance: RIBOCICLIB
     Dosage: 600 MG, QD
     Route: 048
     Dates: start: 20200129, end: 20210510
  3. RIBOCICLIB [Suspect]
     Active Substance: RIBOCICLIB
     Dosage: 600 MG, QD
     Route: 048
     Dates: start: 20210705, end: 202109
  4. RIBOCICLIB [Suspect]
     Active Substance: RIBOCICLIB
     Dosage: 600 MG, QD
     Route: 048
     Dates: start: 20211011, end: 202111
  5. RIBOCICLIB [Suspect]
     Active Substance: RIBOCICLIB
     Dosage: 600 MG, QD
     Route: 048
     Dates: start: 20220910

REACTIONS (17)
  - Type 2 diabetes mellitus [Not Recovered/Not Resolved]
  - Burning sensation [Not Recovered/Not Resolved]
  - Gastric disorder [Unknown]
  - Feeding disorder [Unknown]
  - Vomiting [Unknown]
  - Constipation [Unknown]
  - Pyrexia [Unknown]
  - COVID-19 [Unknown]
  - Blood iron decreased [Unknown]
  - Vitamin D decreased [Unknown]
  - Breast pain [Recovered/Resolved]
  - Hepatomegaly [Recovered/Resolved]
  - Hepatic steatosis [Recovering/Resolving]
  - Dyspnoea [Unknown]
  - Fatigue [Not Recovered/Not Resolved]
  - Nocturia [Not Recovered/Not Resolved]
  - Dizziness [Not Recovered/Not Resolved]

NARRATIVE: CASE EVENT DATE: 20200101
